FAERS Safety Report 9478150 (Version 2)
Quarter: 2013Q3

REPORT INFORMATION
  Report Type: Spontaneous
  Country: US (occurrence: None)
  Receive Date: 20130814
  Receipt Date: 20130829
  Transmission Date: 20140515
  Serious: Yes (Hospitalization)
  Sender: FDA-Public Use
  Company Number: AEUSA201300288

PATIENT
  Age: 61 Year
  Sex: Male
  Weight: 72.58 kg

DRUGS (4)
  1. PROLASTIN-C [Suspect]
     Indication: ALPHA-1 ANTI-TRYPSIN DEFICIENCY
     Route: 042
     Dates: start: 2010, end: 20130805
  2. LIPITOR [Concomitant]
  3. INHALER [Concomitant]
  4. PROLASTIN [Concomitant]

REACTIONS (8)
  - Heart rate increased [None]
  - Cardiac enzymes increased [None]
  - Hypoaesthesia [None]
  - Dizziness [None]
  - Chest discomfort [None]
  - Blood pressure increased [None]
  - Dyspnoea [None]
  - Hypoaesthesia [None]
